FAERS Safety Report 7990913-6 (Version None)
Quarter: 2011Q4

REPORT INFORMATION
  Report Type: 
  Country: None (occurrence: None)
  Receive Date: 20111219
  Receipt Date: 20111212
  Transmission Date: 20120403
  Serious: Yes (Disabling)
  Sender: FDA-Public Use
  Company Number: JP-B.I. PHARMACEUTICALS,INC./RIDGEFIELD-2011-BP-22977NB

PATIENT
  Sex: Female

DRUGS (8)
  1. PRADAXA [Suspect]
     Dosage: 220 MG
     Route: 048
     Dates: start: 20110722, end: 20111011
  2. LASIX [Suspect]
     Dosage: 40 MG
     Route: 048
  3. VERAPAMIL HCL [Suspect]
     Dosage: 80 MG
     Route: 048
  4. RABEPRAZOLE SODIUM [Concomitant]
     Dosage: 10 MG
     Route: 048
  5. CLARITHROMYCIN [Concomitant]
     Route: 065
  6. ISOSORBIDE DINITRATE [Suspect]
     Dosage: 40 MG
     Route: 062
  7. PREDNISOLONE [Concomitant]
     Indication: PEMPHIGOID
     Dosage: 5 MG
     Route: 048
  8. ALDACTONE [Suspect]
     Dosage: 50 MG
     Route: 048

REACTIONS (6)
  - BLOOD PRESSURE DECREASED [None]
  - DISUSE SYNDROME [None]
  - PEMPHIGOID [None]
  - PNEUMONIA [None]
  - SOMNOLENCE [None]
  - DEHYDRATION [None]
